FAERS Safety Report 8235361-9 (Version None)
Quarter: 2012Q1

REPORT INFORMATION
  Report Type: 
  Country: None (occurrence: None)
  Receive Date: 20120326
  Receipt Date: 20120321
  Transmission Date: 20120608
  Serious: Yes (Other)
  Sender: FDA-Public Use
  Company Number: FR-BAYER-2011-087254

PATIENT
  Age: 80 Year
  Sex: Male

DRUGS (4)
  1. ANTIHYPERTENSIVES [Concomitant]
  2. NEXAVAR [Suspect]
     Indication: HEPATIC NEOPLASM MALIGNANT
     Dosage: 200 MG, QD
     Dates: start: 20110630, end: 20110901
  3. CRESTOR [Concomitant]
  4. PLAVIX [Concomitant]

REACTIONS (3)
  - CUTANEOUS TUBERCULOSIS [None]
  - EPIDIDYMITIS TUBERCULOUS [None]
  - ERYTHEMA INDURATUM [None]
